FAERS Safety Report 18065355 (Version 2)
Quarter: 2020Q4

REPORT INFORMATION
  Report Type: Spontaneous
  Country: KR (occurrence: KR)
  Receive Date: 20200724
  Receipt Date: 20201030
  Transmission Date: 20210113
  Serious: Yes (Hospitalization, Other)
  Sender: FDA-Public Use
  Company Number: KR-ACCORD-192290

PATIENT
  Age: 69 Year
  Sex: Male

DRUGS (11)
  1. METFORMIN [Concomitant]
     Active Substance: METFORMIN HYDROCHLORIDE
     Indication: DIABETES MELLITUS
  2. DRONEDARONE [Concomitant]
     Active Substance: DRONEDARONE
     Indication: ANTIFUNGAL TREATMENT
     Dosage: TWICE A DAY
  3. GLIMEPIRIDE. [Concomitant]
     Active Substance: GLIMEPIRIDE
     Indication: DIABETES MELLITUS
  4. AMLODIPINE [Suspect]
     Active Substance: AMLODIPINE BESYLATE
     Indication: HYPERTENSION
  5. ITRACONAZOLE. [Interacting]
     Active Substance: ITRACONAZOLE
     Indication: BRONCHOPULMONARY ASPERGILLOSIS
  6. VORICONAZOLE. [Interacting]
     Active Substance: VORICONAZOLE
     Indication: ANTIFUNGAL TREATMENT
     Dosage: TWICE A DAY
     Route: 048
  7. INSULIN LISPRO/INSULIN LISPRO PROTAMINE SUSPE [Concomitant]
     Active Substance: INSULIN LISPRO
     Indication: DIABETES MELLITUS
  8. CALCIUM GLUCONATE. [Concomitant]
     Active Substance: CALCIUM GLUCONATE
     Route: 042
  9. SPIRONOLACTONE. [Suspect]
     Active Substance: SPIRONOLACTONE
     Indication: HYPERTENSION
     Route: 048
  10. TELMISARTAN. [Concomitant]
     Active Substance: TELMISARTAN
     Indication: HYPERTENSION
  11. CALCIUM POLYSTYRENE SULFONATE [Concomitant]
     Active Substance: CALCIUM POLYSTYRENE SULFONATE

REACTIONS (5)
  - Hyperkalaemia [Recovered/Resolved]
  - Azotaemia [Recovered/Resolved]
  - Hypercalcaemia [Unknown]
  - Drug interaction [Unknown]
  - Hyponatraemia [Recovered/Resolved]
